FAERS Safety Report 16890133 (Version 1)
Quarter: 2019Q4

REPORT INFORMATION
  Report Type: Spontaneous
  Country: US (occurrence: US)
  Receive Date: 20191004
  Receipt Date: 20191004
  Transmission Date: 20200122
  Serious: Yes (Other)
  Sender: FDA-Public Use
  Company Number: None

PATIENT
  Age: 41 Year
  Sex: Female
  Weight: 49.5 kg

DRUGS (2)
  1. GADAVIST [Suspect]
     Active Substance: GADOBUTROL
  2. MAGNEVIST [Suspect]
     Active Substance: GADOPENTETATE DIMEGLUMINE

REACTIONS (27)
  - Vision blurred [None]
  - Dysphagia [None]
  - Sensory disturbance [None]
  - Skin burning sensation [None]
  - Dyspnoea [None]
  - Dysgeusia [None]
  - Musculoskeletal stiffness [None]
  - Lacrimation increased [None]
  - Eye irritation [None]
  - Tinnitus [None]
  - Headache [None]
  - Visual acuity reduced [None]
  - Muscle atrophy [None]
  - Diarrhoea [None]
  - Insomnia [None]
  - Gadolinium deposition disease [None]
  - Arthralgia [None]
  - Hypoaesthesia [None]
  - Loss of consciousness [None]
  - Eye pain [None]
  - Neuralgia [None]
  - Paraesthesia [None]
  - Pruritus [None]
  - Aphasia [None]
  - Palpitations [None]
  - Musculoskeletal pain [None]
  - Contrast media toxicity [None]

NARRATIVE: CASE EVENT DATE: 20190626
